FAERS Safety Report 5557994-0 (Version None)
Quarter: 2007Q4

REPORT INFORMATION
  Report Type: 
  Country: None (occurrence: None)
  Receive Date: 20071214
  Receipt Date: 20071123
  Transmission Date: 20080405
  Serious: Yes (Hospitalization)
  Sender: FDA-Public Use
  Company Number: GB-RANBAXY-2005RR-00759

PATIENT

DRUGS (1)
  1. IBUPROFEN TABLETS BP 400MG [Suspect]
     Dosage: 14 G, UNK
     Route: 048

REACTIONS (11)
  - ABDOMINAL PAIN [None]
  - ACQUIRED DIAPHRAGMATIC EVENTRATION [None]
  - DUODENAL PERFORATION [None]
  - DUODENAL ULCER PERFORATION [None]
  - HYPERTENSION [None]
  - NEUTROPHILIA [None]
  - OVERDOSE [None]
  - PYREXIA [None]
  - TACHYCARDIA [None]
  - TACHYPNOEA [None]
  - VOMITING [None]
